FAERS Safety Report 9184300 (Version 1)
Quarter: 2012Q4

REPORT INFORMATION
  Report Type: 
  Country: US (occurrence: US)
  Receive Date: 20121031
  Receipt Date: 20121031
  Transmission Date: 20130627
  Serious: Yes (Disabling, Other)
  Sender: FDA-Public Use
  Company Number: US-ELI_LILLY_AND_COMPANY-US201210006890

PATIENT
  Sex: Female

DRUGS (2)
  1. HUMALOG LISPRO [Suspect]
     Indication: DIABETES MELLITUS
     Dosage: UNK UNK, prn
  2. LANTUS [Concomitant]
     Dosage: UNK, unknown

REACTIONS (15)
  - Renal failure [Unknown]
  - Thrombosis [Unknown]
  - Pulmonary oedema [Unknown]
  - Implantable defibrillator insertion [Unknown]
  - Abasia [Recovered/Resolved]
  - Cardiac disorder [Unknown]
  - Stent placement [Unknown]
  - Cardiac valve disease [Unknown]
  - Blood glucose increased [Unknown]
  - Visual acuity reduced [Unknown]
  - Cataract [Unknown]
  - Eye swelling [Unknown]
  - Blood glucose decreased [Recovered/Resolved]
  - Wrong drug administered [Recovered/Resolved]
  - Drug ineffective [Unknown]
